FAERS Safety Report 5920086-2 (Version None)
Quarter: 2008Q4

REPORT INFORMATION
  Report Type: 
  Country: None (occurrence: None)
  Receive Date: 20081014
  Receipt Date: 20080929
  Transmission Date: 20090506
  Serious: Yes (Other)
  Sender: FDA-Public Use
  Company Number: WAES 0809USA05030

PATIENT
  Age: 36 Year
  Sex: Female

DRUGS (5)
  1. ALDOMET [Suspect]
     Indication: BLOOD PRESSURE ABNORMAL
     Dosage: 500 MG/TID PO
     Route: 048
  2. CALCIUM CARBONATE [Concomitant]
  3. EPOETIN [Concomitant]
  4. FOLIC ACID [Concomitant]
  5. IRON SUCROSE [Concomitant]

REACTIONS (3)
  - CAESAREAN SECTION [None]
  - DRUG EXPOSURE DURING PREGNANCY [None]
  - PRE-ECLAMPSIA [None]
